FAERS Safety Report 14387371 (Version 1)
Quarter: 2018Q1

REPORT INFORMATION
  Report Type: Report from Study
  Country: CN (occurrence: CN)
  Receive Date: 20180115
  Receipt Date: 20180115
  Transmission Date: 20180509
  Serious: Yes (Other)
  Sender: FDA-Public Use
  Company Number: CN-MYLANLABS-2018M1002034

PATIENT

DRUGS (2)
  1. DEXAMETHASONE. [Suspect]
     Active Substance: DEXAMETHASONE
     Indication: WALDENSTROM^S MACROGLOBULINAEMIA
     Dosage: 40 MG DAILY ON DAYS 1, 4, 8, AND 11 OF A 21-DAY CYCLE
     Route: 042
  2. BORTEZOMIB [Suspect]
     Active Substance: BORTEZOMIB
     Indication: WALDENSTROM^S MACROGLOBULINAEMIA
     Dosage: 1.0 MG/M2 DAILY ON DAYS 1, 4, 8, AND 11 OF A 21-DAY CYCLE
     Route: 042

REACTIONS (1)
  - Hyperglycaemia [Recovered/Resolved]
